FAERS Safety Report 5917681-3 (Version None)
Quarter: 2008Q4

REPORT INFORMATION
  Report Type: 
  Country: None (occurrence: None)
  Receive Date: 20081009
  Receipt Date: 20081006
  Transmission Date: 20090506
  Serious: Yes (Hospitalization)
  Sender: FDA-Public Use
  Company Number: 2008AL010225

PATIENT
  Age: 94 Year
  Sex: Female
  Weight: 49.8957 kg

DRUGS (3)
  1. DIGOXIN [Suspect]
     Indication: CARDIAC DISORDER
     Dosage: 0.25MG, 1 TAB, QD, PO
     Route: 048
  2. LOTREL [Concomitant]
  3. AMIODARONE HCL [Concomitant]

REACTIONS (8)
  - ANGINA PECTORIS [None]
  - DISCOMFORT [None]
  - EYE DISORDER [None]
  - GASTRIC DISORDER [None]
  - HEADACHE [None]
  - HEART RATE IRREGULAR [None]
  - MUSCULOSKELETAL PAIN [None]
  - VISION BLURRED [None]
